FAERS Safety Report 12894204 (Version 2)
Quarter: 2016Q4

REPORT INFORMATION
  Report Type: Report from Study
  Country: PL (occurrence: PL)
  Receive Date: 20161028
  Receipt Date: 20161110
  Transmission Date: 20170207
  Serious: Yes (Hospitalization)
  Sender: FDA-Public Use
  Company Number: PL-CELLTRION HEALTHCARE HUNGARY KFT-2016PL007576

PATIENT

DRUGS (14)
  1. IBUPROFEN. [Concomitant]
     Active Substance: IBUPROFEN
     Dosage: 400 MG, TID
     Route: 048
     Dates: start: 20160803, end: 20160811
  2. REMSIMA [Suspect]
     Active Substance: INFLIXIMAB
     Dosage: 400 MG, UNK
     Route: 065
     Dates: start: 20151211, end: 20151211
  3. REMSIMA [Suspect]
     Active Substance: INFLIXIMAB
     Dosage: 400 MG, UNK
     Route: 065
     Dates: start: 20160520, end: 20160520
  4. REMSIMA [Suspect]
     Active Substance: INFLIXIMAB
     Dosage: 400 MG, UNK
     Route: 065
     Dates: start: 20160708, end: 20160708
  5. IBUPROFEN. [Concomitant]
     Active Substance: IBUPROFEN
     Indication: CHEST PAIN
     Dosage: 400 MG, DAILY
     Route: 048
     Dates: start: 20160728, end: 20160801
  6. MESALAZINE [Concomitant]
     Active Substance: MESALAMINE
     Indication: COLITIS ULCERATIVE
     Dosage: 2 G, BID
     Route: 048
     Dates: start: 20151113
  7. REMSIMA [Suspect]
     Active Substance: INFLIXIMAB
     Indication: COLITIS ULCERATIVE
     Dosage: 400 MG, UNK
     Route: 065
     Dates: start: 20151113, end: 20151113
  8. ACIDUM FOLICUM [Concomitant]
     Active Substance: FOLIC ACID
     Indication: SUPPLEMENTATION THERAPY
     Dosage: 5 MG, DAILY
     Route: 048
     Dates: start: 20151113
  9. HYDROCORTISONE. [Concomitant]
     Active Substance: HYDROCORTISONE
     Indication: PREMEDICATION
     Dosage: 100 MG, DAILY
     Route: 042
     Dates: start: 20160708, end: 20160708
  10. PYRALGIN                           /06276704/ [Concomitant]
     Indication: CHEST PAIN
     Dosage: 1 G, DAILY
     Route: 048
     Dates: start: 20160802, end: 20160802
  11. REMSIMA [Suspect]
     Active Substance: INFLIXIMAB
     Dosage: 400 MG, UNK
     Route: 065
     Dates: start: 20160205, end: 20160205
  12. REMSIMA [Suspect]
     Active Substance: INFLIXIMAB
     Dosage: 400 MG, UNK
     Route: 065
     Dates: start: 20160401, end: 20160401
  13. AZATHIOPRINE. [Concomitant]
     Active Substance: AZATHIOPRINE
     Indication: COLITIS ULCERATIVE
     Dosage: 50 MG, DAILY
     Route: 048
     Dates: start: 20151113
  14. KLINDACIN T [Concomitant]
     Indication: ACNE
     Dosage: 1 UNK, UNK
     Route: 062
     Dates: start: 20160804, end: 20160814

REACTIONS (1)
  - Intercostal neuralgia [Recovered/Resolved]

NARRATIVE: CASE EVENT DATE: 20160728
